FAERS Safety Report 4345709-3 (Version None)
Quarter: 2004Q2

REPORT INFORMATION
  Report Type: 
  Country: None (occurrence: None)
  Receive Date: 20040421
  Receipt Date: 20040409
  Transmission Date: 20050107
  Serious: Yes (Other)
  Sender: FDA-Public Use
  Company Number: NSADSS2002011611

PATIENT
  Age: 59 Year
  Sex: Female
  Weight: 78.9259 kg

DRUGS (18)
  1. REMICADE [Suspect]
     Indication: RHEUMATOID ARTHRITIS
     Dosage: 3 VIALS, INTRAVENOUS DRIP
     Route: 041
     Dates: start: 20000614
  2. REMICADE [Suspect]
     Indication: RHEUMATOID ARTHRITIS
     Dosage: 3 VIALS, INTRAVENOUS DRIP
     Route: 041
     Dates: start: 20000809
  3. REMICADE [Suspect]
     Indication: RHEUMATOID ARTHRITIS
     Dosage: 3 VIALS, INTRAVENOUS DRIP
     Route: 041
     Dates: start: 20001004
  4. REMICADE [Suspect]
     Indication: RHEUMATOID ARTHRITIS
     Dosage: 3 VIALS, INTRAVENOUS DRIP
     Route: 041
     Dates: start: 20001206
  5. REMICADE [Suspect]
     Indication: RHEUMATOID ARTHRITIS
     Dosage: 3 VIALS, INTRAVENOUS DRIP
     Route: 041
     Dates: start: 20010131
  6. REMICADE [Suspect]
     Indication: RHEUMATOID ARTHRITIS
     Dosage: 3 VIALS, INTRAVENOUS DRIP
     Route: 041
     Dates: start: 20010328
  7. REMICADE [Suspect]
     Indication: RHEUMATOID ARTHRITIS
     Dosage: 3 VIALS, INTRAVENOUS DRIP
     Route: 041
     Dates: start: 20010510
  8. REMICADE [Suspect]
     Indication: RHEUMATOID ARTHRITIS
     Dosage: 3 VIALS, INTRAVENOUS DRIP
     Route: 041
     Dates: start: 20010523
  9. REMICADE [Suspect]
     Indication: RHEUMATOID ARTHRITIS
     Dosage: 3 VIALS, INTRAVENOUS DRIP
     Route: 041
     Dates: start: 20010702
  10. REMICADE [Suspect]
     Indication: RHEUMATOID ARTHRITIS
     Dosage: 3 VIALS, INTRAVENOUS DRIP
     Route: 041
     Dates: start: 20010813
  11. REMICADE [Suspect]
     Indication: RHEUMATOID ARTHRITIS
     Dosage: 3 VIALS, INTRAVENOUS DRIP
     Route: 041
     Dates: start: 20010904
  12. REMICADE [Suspect]
     Indication: RHEUMATOID ARTHRITIS
     Dosage: 3 VIALS, INTRAVENOUS DRIP
     Route: 041
     Dates: start: 20010925
  13. REMICADE [Suspect]
     Indication: RHEUMATOID ARTHRITIS
     Dosage: 3 VIALS, INTRAVENOUS DRIP
     Route: 041
     Dates: start: 20011106
  14. REMICADE [Suspect]
     Indication: RHEUMATOID ARTHRITIS
     Dosage: 3 VIALS, INTRAVENOUS DRIP
     Route: 041
     Dates: start: 20011204
  15. REMICADE [Suspect]
     Indication: RHEUMATOID ARTHRITIS
     Dosage: 3 VIALS, INTRAVENOUS DRIP
     Route: 041
     Dates: start: 20020108
  16. REMICADE [Suspect]
     Indication: RHEUMATOID ARTHRITIS
     Dosage: 3 VIALS, INTRAVENOUS DRIP
     Route: 041
     Dates: start: 20020305
  17. REMICADE [Suspect]
     Indication: RHEUMATOID ARTHRITIS
     Dosage: 3 VIALS, INTRAVENOUS DRIP
     Route: 041
     Dates: start: 20020402
  18. METHOTREXATE [Suspect]
     Indication: RHEUMATOID ARTHRITIS
     Dosage: 6 PILLS/WEEK
     Dates: start: 19991123, end: 20020312

REACTIONS (4)
  - LUPUS-LIKE SYNDROME [None]
  - PLEURAL EFFUSION [None]
  - PNEUMONITIS [None]
  - WEIGHT INCREASED [None]
